FAERS Safety Report 23593489 (Version 1)
Quarter: 2024Q1

REPORT INFORMATION
  Report Type: Spontaneous
  Country: DK (occurrence: DK)
  Receive Date: 20240304
  Receipt Date: 20240304
  Transmission Date: 20240410
  Serious: Yes (Life-Threatening, Hospitalization)
  Sender: FDA-Public Use
  Company Number: None

PATIENT
  Age: 51 Year
  Sex: Male

DRUGS (1)
  1. OCREVUS [Suspect]
     Active Substance: OCRELIZUMAB
     Indication: Multiple sclerosis
     Dosage: STRENGTH: 300MG?LATEST INFUSION ON 03OCT2023
     Route: 065
     Dates: start: 20230830, end: 20231031

REACTIONS (6)
  - Pyrexia [Recovered/Resolved]
  - Neck pain [Recovering/Resolving]
  - Headache [Recovering/Resolving]
  - Brain abscess [Recovering/Resolving]
  - Dysaesthesia [Recovered/Resolved]
  - Pain in jaw [Not Recovered/Not Resolved]

NARRATIVE: CASE EVENT DATE: 20231025
